FAERS Safety Report 7244520-3 (Version None)
Quarter: 2011Q1

REPORT INFORMATION
  Report Type: 
  Country: None (occurrence: None)
  Receive Date: 20110125
  Receipt Date: 20110117
  Transmission Date: 20110831
  Serious: Yes (Other)
  Sender: FDA-Public Use
  Company Number: US-ELI_LILLY_AND_COMPANY-US201101004249

PATIENT
  Sex: Female
  Weight: 86.621 kg

DRUGS (5)
  1. BYETTA [Suspect]
     Dosage: 10 UG, 2/D
     Route: 058
  2. METFORMIN HCL [Concomitant]
     Indication: TYPE 2 DIABETES MELLITUS
     Dosage: 850 MG, 2/D
     Route: 048
  3. BYETTA [Suspect]
     Indication: TYPE 2 DIABETES MELLITUS
     Dosage: 5 UG, 2/D
     Route: 058
  4. CALCIUM [Concomitant]
     Indication: PRODUCT USED FOR UNKNOWN INDICATION
     Dosage: 600 MG, 2/D
     Route: 048
  5. GLYBURIDE [Concomitant]
     Indication: TYPE 2 DIABETES MELLITUS
     Dosage: 5 MG, EACH MORNING
     Route: 048

REACTIONS (10)
  - BLOOD GLUCOSE DECREASED [None]
  - NAUSEA [None]
  - WEIGHT DECREASED [None]
  - BREAST CANCER [None]
  - RETCHING [None]
  - ASTHENIA [None]
  - CATARACT [None]
  - EYE OPERATION [None]
  - DECREASED APPETITE [None]
  - APPENDICECTOMY [None]
